FAERS Safety Report 9246180 (Version 1)
Quarter: 2013Q2

REPORT INFORMATION
  Report Type: Spontaneous
  Country: DE (occurrence: DE)
  Receive Date: 20130422
  Receipt Date: 20130422
  Transmission Date: 20140414
  Serious: Yes (Other)
  Sender: FDA-Public Use
  Company Number: DE-ASTRAZENECA-2013SE25941

PATIENT
  Age: 37 Year
  Sex: Male

DRUGS (13)
  1. QUETIAPINE [Suspect]
     Route: 048
     Dates: start: 20120817, end: 20120819
  2. QUETIAPINE [Suspect]
     Route: 048
     Dates: start: 20120820, end: 20120823
  3. QUETIAPINE [Suspect]
     Route: 048
     Dates: start: 20120824, end: 20120903
  4. QUETIAPINE [Suspect]
     Route: 048
     Dates: start: 20120904
  5. QUETIAPINE [Suspect]
     Route: 048
     Dates: start: 20120905, end: 20120908
  6. QUETIAPINE [Suspect]
     Route: 048
     Dates: start: 20120909, end: 20120911
  7. SERTRALINE [Suspect]
     Route: 048
     Dates: start: 20120829, end: 20120830
  8. SERTRALINE [Suspect]
     Route: 048
     Dates: start: 20120831, end: 20120903
  9. SERTRALINE [Suspect]
     Route: 048
     Dates: start: 20120904
  10. LORAZEPAM [Suspect]
     Route: 048
     Dates: start: 20120817, end: 20120904
  11. LORAZEPAM [Suspect]
     Route: 048
     Dates: start: 20120906, end: 20120909
  12. LORAZEPAM [Suspect]
     Route: 048
     Dates: start: 20120911, end: 20120916
  13. LORAZEPAM [Suspect]
     Route: 048
     Dates: start: 20120910

REACTIONS (4)
  - Fall [Recovered/Resolved]
  - Loss of consciousness [Unknown]
  - Dizziness [Unknown]
  - Contusion [Unknown]
